FAERS Safety Report 13179711 (Version 1)
Quarter: 2017Q1

REPORT INFORMATION
  Report Type: Spontaneous
  Country: BE (occurrence: BE)
  Receive Date: 20170202
  Receipt Date: 20170202
  Transmission Date: 20170428
  Serious: Yes (Hospitalization)
  Sender: FDA-Public Use
  Company Number: BE-SA-2017SA015338

PATIENT
  Age: 35 Year
  Sex: Male

DRUGS (2)
  1. DOXYCYCLINE. [Suspect]
     Active Substance: DOXYCYCLINE
     Indication: CAT SCRATCH DISEASE
     Route: 065
     Dates: start: 2015
  2. RIFAMPICIN [Suspect]
     Active Substance: RIFAMPIN
     Indication: CAT SCRATCH DISEASE
     Route: 065
     Dates: start: 2015

REACTIONS (12)
  - Night sweats [Unknown]
  - C-reactive protein increased [Unknown]
  - Serum ferritin increased [Unknown]
  - Cat scratch disease [Unknown]
  - Blood alkaline phosphatase increased [Unknown]
  - Disease progression [Unknown]
  - Pyrexia [Unknown]
  - Lymphadenopathy [Unknown]
  - Granulomatous liver disease [Unknown]
  - Drug ineffective [Unknown]
  - Fatigue [Unknown]
  - Splenomegaly [Unknown]

NARRATIVE: CASE EVENT DATE: 2015
